FAERS Safety Report 15801147 (Version 5)
Quarter: 2019Q2

REPORT INFORMATION
  Report Type: Report from Study
  Country: None (occurrence: US)
  Receive Date: 20190109
  Receipt Date: 20190510
  Transmission Date: 20190711
  Serious: Yes (Hospitalization, Other)
  Sender: FDA-Public Use
  Company Number: US-ABBVIE-19K-163-2616269-00

PATIENT
  Sex: Female

DRUGS (1)
  1. HUMIRA [Suspect]
     Active Substance: ADALIMUMAB
     Indication: RHEUMATOID ARTHRITIS
     Route: 058
     Dates: start: 20170915

REACTIONS (22)
  - Loss of consciousness [Recovered/Resolved]
  - Blood magnesium decreased [Recovering/Resolving]
  - Dizziness [Recovered/Resolved]
  - Arrhythmia [Recovered/Resolved]
  - Nerve compression [Unknown]
  - Syncope [Recovered/Resolved]
  - Urinary tract infection [Recovered/Resolved]
  - Renal failure [Unknown]
  - Atrial fibrillation [Not Recovered/Not Resolved]
  - Weight decreased [Unknown]
  - Sinusitis [Recovering/Resolving]
  - Pain in extremity [Unknown]
  - Inflammatory pain [Not Recovered/Not Resolved]
  - Spinal pain [Unknown]
  - Colitis [Recovering/Resolving]
  - Colitis [Unknown]
  - Drug ineffective [Unknown]
  - Immunodeficiency [Unknown]
  - Blood potassium decreased [Recovering/Resolving]
  - Arthralgia [Unknown]
  - Blood pressure abnormal [Not Recovered/Not Resolved]
  - Nasal congestion [Unknown]

NARRATIVE: CASE EVENT DATE: 2019
